FAERS Safety Report 15289991 (Version 2)
Quarter: 2018Q3

REPORT INFORMATION
  Report Type: Spontaneous
  Country: GB (occurrence: GB)
  Receive Date: 20180817
  Receipt Date: 20180910
  Transmission Date: 20181010
  Serious: Yes (Other)
  Sender: FDA-Public Use
  Company Number: GB-SA-2018SA224278

PATIENT
  Age: 62 Year
  Sex: Female

DRUGS (5)
  1. PRALUENT [Suspect]
     Active Substance: ALIROCUMAB
     Indication: TYPE IIA HYPERLIPIDAEMIA
     Dosage: 150 MG, QOW
     Dates: start: 201610
  2. ESOMEPRAZOLE [Concomitant]
     Active Substance: ESOMEPRAZOLE
     Indication: GASTRITIS
     Dosage: 40 MG
     Dates: start: 2008
  3. PRALUENT [Suspect]
     Active Substance: ALIROCUMAB
     Indication: TYPE IIA HYPERLIPIDAEMIA
     Dosage: 150 MG, QOW
     Dates: start: 201610
  4. LEVOTHYROXINE. [Concomitant]
     Active Substance: LEVOTHYROXINE
     Indication: HYPOTHYROIDISM
     Dosage: 25 UG, QD
     Dates: start: 2003
  5. VOLTAROL 12 HOUR EMULGEL [Concomitant]
     Indication: ARTHRALGIA
     Dosage: UNK
     Dates: start: 2003

REACTIONS (5)
  - Lower respiratory tract infection [Recovered/Resolved]
  - Weight increased [Unknown]
  - Drug dose omission [Unknown]
  - Condition aggravated [Recovered/Resolved]
  - Sinusitis [Unknown]
